FAERS Safety Report 14073249 (Version 1)
Quarter: 2017Q4

REPORT INFORMATION
  Report Type: Spontaneous
  Country: US (occurrence: US)
  Receive Date: 20171011
  Receipt Date: 20171011
  Transmission Date: 20180321
  Serious: No
  Sender: FDA-Public Use
  Company Number: US-ASTRAZENECA-2017SE54699

PATIENT
  Sex: Female

DRUGS (1)
  1. ZOMIG [Suspect]
     Active Substance: ZOLMITRIPTAN
     Dosage: TAKE 1 TABLET BY MOUTH AT HEADACHE START. MAY REPEAT ONCE IN 2 HOURS IF NEEDED.
     Route: 048
     Dates: start: 20090723

REACTIONS (1)
  - Malaise [Unknown]
